FAERS Safety Report 4339890-X (Version None)
Quarter: 2004Q2

REPORT INFORMATION
  Report Type: 
  Country: None (occurrence: None)
  Receive Date: 20040409
  Receipt Date: 20040409
  Transmission Date: 20050107
  Serious: Yes (Other)
  Sender: FDA-Public Use
  Company Number: None

PATIENT
  Age: 25 Year
  Sex: Female

DRUGS (1)
  1. CARBATROL [Suspect]
     Indication: BIPOLAR DISORDER
     Dosage: 400 MG X 2 /DAY

REACTIONS (1)
  - MEDICATION ERROR [None]
